FAERS Safety Report 11301138 (Version 1)
Quarter: 2015Q3

REPORT INFORMATION
  Report Type: Spontaneous
  Country: US (occurrence: US)
  Receive Date: 20150722
  Receipt Date: 20150722
  Transmission Date: 20151125
  Serious: No
  Sender: FDA-Public Use
  Company Number: US-ELI_LILLY_AND_COMPANY-US201108008820

PATIENT
  Sex: Female

DRUGS (7)
  1. EVISTA [Suspect]
     Active Substance: RALOXIFENE HYDROCHLORIDE
     Dosage: 60 MG, QD
  2. EVISTA [Suspect]
     Active Substance: RALOXIFENE HYDROCHLORIDE
     Dosage: 60 MG, QD
     Dates: end: 201107
  3. HORMONES [Concomitant]
     Active Substance: UNSPECIFIED INGREDIENT
     Dosage: UNK
  4. EVISTA [Suspect]
     Active Substance: RALOXIFENE HYDROCHLORIDE
     Dosage: 60 MG, QD
  5. VITAMINS NOS [Concomitant]
     Active Substance: VITAMINS
     Indication: DRY EYE
     Dosage: UNK
  6. EVISTA [Suspect]
     Active Substance: RALOXIFENE HYDROCHLORIDE
     Indication: OSTEOPOROSIS
     Dosage: 60 MG, QD
     Dates: start: 201012
  7. EVISTA [Suspect]
     Active Substance: RALOXIFENE HYDROCHLORIDE
     Dosage: 60 MG, QD

REACTIONS (6)
  - Joint injury [Unknown]
  - Panic reaction [Unknown]
  - Visual acuity reduced [Unknown]
  - Arthralgia [Unknown]
  - Adverse reaction [Recovered/Resolved]
  - Drug ineffective [Unknown]
